FAERS Safety Report 21591532 (Version 1)
Quarter: 2022Q4

REPORT INFORMATION
  Report Type: Report from Study
  Country: US (occurrence: US)
  Receive Date: 20221114
  Receipt Date: 20221114
  Transmission Date: 20230113
  Serious: No
  Sender: FDA-Public Use
  Company Number: US-ABBVIE-4143199

PATIENT
  Sex: Male

DRUGS (1)
  1. HUMIRA [Suspect]
     Active Substance: ADALIMUMAB
     Indication: Crohn^s disease
     Dosage: QUANTITY 56 ONE TABLET PO DAILY FOR 56 DAYS REFILL : ZERO
     Route: 058

REACTIONS (2)
  - Off label use [Unknown]
  - Crohn^s disease [Unknown]
